FAERS Safety Report 16858273 (Version 5)
Quarter: 2019Q4

REPORT INFORMATION
  Report Type: Spontaneous
  Country: US (occurrence: US)
  Receive Date: 20190926
  Receipt Date: 20191127
  Transmission Date: 20200122
  Serious: Yes (Other)
  Sender: FDA-Public Use
  Company Number: US-PFIZER INC-2019416594

PATIENT
  Age: 69 Year
  Sex: Female
  Weight: 95 kg

DRUGS (15)
  1. MAGNESIUM [Concomitant]
     Active Substance: MAGNESIUM
     Dosage: UNK UNK, DAILY
     Route: 048
  2. HYDROXYCHLOROQUINE SULFATE. [Concomitant]
     Active Substance: HYDROXYCHLOROQUINE SULFATE
     Dosage: 200 MG, 2X/DAY
     Route: 048
  3. VITAMIN D 2000 [Concomitant]
     Active Substance: VITAMIN D NOS
     Dosage: 2000 IU, UNK [AS DIRECTED ]
     Route: 048
     Dates: start: 20140930
  4. ZINC. [Concomitant]
     Active Substance: ZINC
     Dosage: UNK UNK, DAILY
     Route: 048
  5. LYRICA [Suspect]
     Active Substance: PREGABALIN
     Indication: PAIN
     Dosage: 50 MG, 3X/DAY (ONE CAPSULE THREE TIMES DAILY)
     Route: 048
     Dates: start: 20191007
  6. LYRICA [Suspect]
     Active Substance: PREGABALIN
     Indication: NEUROPATHY PERIPHERAL
  7. OMEPRAZOLE. [Concomitant]
     Active Substance: OMEPRAZOLE
     Dosage: 10 MG, 2X/DAY
     Route: 048
  8. AFATINIB DIMALEATE [Concomitant]
     Active Substance: AFATINIB DIMALEATE
     Dosage: 40 MG, DAILY
     Route: 048
  9. LOSARTAN POTASSSIUM [Concomitant]
     Dosage: 25 MG, DAILY
     Route: 048
     Dates: start: 20190806
  10. PREDNISONE. [Concomitant]
     Active Substance: PREDNISONE
     Dosage: 5 MG, WEEKLY
     Route: 048
  11. CLINDAMYCIN PHOSPHATE. [Concomitant]
     Active Substance: CLINDAMYCIN PHOSPHATE
     Dosage: 1 %, DAILY (ONCE (EXTERNAL DAILY)
  12. VITAMIN B12 [Concomitant]
     Active Substance: CYANOCOBALAMIN
     Dosage: 1000 UG, UNK [AS DIRECTED ]
     Route: 060
     Dates: start: 20140930
  13. LYRICA [Suspect]
     Active Substance: PREGABALIN
     Indication: BURNING FEET SYNDROME
     Dosage: 50 MG, AS NEEDED, (1-2 TIMES A DAY)
  14. PRAVASTATIN SODIUM. [Concomitant]
     Active Substance: PRAVASTATIN SODIUM
     Dosage: 20 MG, DAILY
     Route: 048
     Dates: start: 20190328
  15. TOPAMAX [Concomitant]
     Active Substance: TOPIRAMATE
     Dosage: 25 MG, DAILY [AT BEDTIME ]
     Route: 048
     Dates: start: 20190326

REACTIONS (5)
  - Lung carcinoma cell type unspecified stage IV [Recovered/Resolved]
  - Intentional product misuse [Unknown]
  - Pain in extremity [Unknown]
  - Pre-existing condition improved [Unknown]
  - Therapeutic response unexpected [Unknown]
